FAERS Safety Report 6787815-X (Version None)
Quarter: 2010Q2

REPORT INFORMATION
  Report Type: 
  Country: None (occurrence: None)
  Receive Date: 20100623
  Receipt Date: 20071107
  Transmission Date: 20101027
  Serious: No
  Sender: FDA-Public Use
  Company Number: US-PFIZER INC-2007060032

PATIENT
  Sex: Female

DRUGS (2)
  1. COLESTID [Suspect]
  2. CHOLESTYRAMINE [Suspect]

REACTIONS (3)
  - DRUG INTOLERANCE [None]
  - DYSPHAGIA [None]
  - NAUSEA [None]
